FAERS Safety Report 7939862-X (Version None)
Quarter: 2011Q4

REPORT INFORMATION
  Report Type: 
  Country: None (occurrence: None)
  Receive Date: 20111125
  Receipt Date: 20111114
  Transmission Date: 20120403
  Serious: Yes (Other)
  Sender: FDA-Public Use
  Company Number: CN-BRISTOL-MYERS SQUIBB COMPANY-16229635

PATIENT
  Age: 47 Year
  Sex: Male

DRUGS (8)
  1. TENOFOVIR DISOPROXIL FUMARATE [Suspect]
     Indication: HIV INFECTION
  2. EFAVIRENZ [Suspect]
     Indication: HIV INFECTION
  3. VINCRISTINE [Suspect]
     Indication: DIFFUSE LARGE B-CELL LYMPHOMA
  4. PREDNISOLONE [Suspect]
     Indication: DIFFUSE LARGE B-CELL LYMPHOMA
  5. CYCLOPHOSPHAMIDE [Suspect]
     Indication: DIFFUSE LARGE B-CELL LYMPHOMA
  6. DOXORUBICIN HCL [Suspect]
     Indication: DIFFUSE LARGE B-CELL LYMPHOMA
  7. LAMIVUDINE(PEPFAR) [Suspect]
     Indication: HIV INFECTION
  8. FILGRASTIM [Suspect]

REACTIONS (2)
  - FEBRILE NEUTROPENIA [None]
  - NEUTROPHIL MORPHOLOGY ABNORMAL [None]
